FAERS Safety Report 6733349-8 (Version None)
Quarter: 2010Q2

REPORT INFORMATION
  Report Type: 
  Country: None (occurrence: None)
  Receive Date: 20100520
  Receipt Date: 20100512
  Transmission Date: 20101027
  Serious: Yes (Other)
  Sender: FDA-Public Use
  Company Number: JP-PFIZER INC-2010047521

PATIENT
  Age: 60 Year
  Sex: Male

DRUGS (3)
  1. CORTRIL [Suspect]
     Indication: HYPOTHYROIDISM
     Dosage: 5 MG PER DAY
     Route: 048
  2. THYRADIN [Suspect]
     Dosage: 50 UG PER DAY
     Route: 048
  3. TAKEPRON [Suspect]
     Dosage: 15 MG PER DAY
     Route: 048

REACTIONS (1)
  - HYPOTENSION [None]
